FAERS Safety Report 10049895 (Version 1)
Quarter: 2014Q1

REPORT INFORMATION
  Report Type: Spontaneous
  Country: US (occurrence: None)
  Receive Date: 20140331
  Receipt Date: 20140331
  Transmission Date: 20141002
  Serious: Yes (Other)
  Sender: FDA-Public Use
  Company Number: None

PATIENT
  Age: 83 Year
  Sex: 0

DRUGS (3)
  1. BUPIVACAINE [Suspect]
     Indication: ANAESTHESIA PROCEDURE
     Dosage: 12 MG , ONCE, SPINAL
  2. BUPIVACAINE [Suspect]
     Indication: KNEE ARTHROPLASTY
     Dosage: 12 MG , ONCE, SPINAL
  3. EPINEPHRINE [Concomitant]

REACTIONS (2)
  - Anaesthetic complication [None]
  - Product quality issue [None]
